FAERS Safety Report 12669430 (Version 6)
Quarter: 2016Q4

REPORT INFORMATION
  Report Type: Spontaneous
  Country: HK (occurrence: HK)
  Receive Date: 20160819
  Receipt Date: 20161014
  Transmission Date: 20170207
  Serious: Yes (Hospitalization)
  Sender: FDA-Public Use
  Company Number: HK-PFIZER INC-2016390714

PATIENT
  Age: 21 Year
  Sex: Male

DRUGS (3)
  1. CISPLATIN. [Suspect]
     Active Substance: CISPLATIN
     Indication: NONGERMINOMATOUS GERM CELL TUMOUR OF THE CNS
     Dosage: 20 MG/M2, CYCLIC, ON DAY 1-5
  2. BLEOMYCIN SULFATE [Suspect]
     Active Substance: BLEOMYCIN SULFATE
     Indication: NONGERMINOMATOUS GERM CELL TUMOUR OF THE CNS
     Dosage: 30 MG, CYCLIC,DAY 2, 6, 16 ON 3-WEEK CYCLE
  3. ETOPOSIDE. [Suspect]
     Active Substance: ETOPOSIDE
     Indication: NONGERMINOMATOUS GERM CELL TUMOUR OF THE CNS
     Dosage: 100 MG/M2, CYCLIC, ON DAY 1-5

REACTIONS (1)
  - Pneumocystis jirovecii infection [Recovering/Resolving]

NARRATIVE: CASE EVENT DATE: 20150223
